FAERS Safety Report 8549529-5 (Version None)
Quarter: 2012Q3

REPORT INFORMATION
  Report Type: 
  Country: None (occurrence: None)
  Receive Date: 20120730
  Receipt Date: 20120724
  Transmission Date: 20120928
  Serious: Yes (Death, Life-Threatening, Other)
  Sender: FDA-Public Use
  Company Number: JP-PFIZER INC-2012141912

PATIENT
  Age: 92 Year
  Sex: Female
  Weight: 46.4 kg

DRUGS (14)
  1. ESPO [Concomitant]
     Indication: NEPHROGENIC ANAEMIA
     Dosage: 3000 IU, THRICE WEEKLY
     Route: 042
     Dates: start: 20120101, end: 20120612
  2. DERIPHYLLIN [Concomitant]
     Indication: ASTHMA
     Dosage: 100 MG, 2X/DAY
     Dates: start: 20110809, end: 20120615
  3. MONTELUKAST SODIUM [Concomitant]
     Indication: ASTHMA
     Dosage: 10 MG, 1X/DAY
     Dates: start: 20110809, end: 20120615
  4. HYDROCORTISONE SODIUM SUCCINATE [Concomitant]
     Indication: ASTHMA
     Dosage: 100 MG, 1X/DAY
     Route: 042
     Dates: start: 20120611
  5. LANSOPRAZOLE [Concomitant]
     Indication: PROPHYLAXIS
     Dosage: 15 MG, 1X/DAY
     Dates: start: 20110809, end: 20120615
  6. DAIOKANZOTO [Concomitant]
     Indication: CONSTIPATION
     Dosage: 2.5 G, 2X/DAY
     Dates: start: 20110809, end: 20120611
  7. NICHIPHAGEN [Concomitant]
     Indication: PRURITUS
     Dosage: 20 ML, THRICE WEEKLY
     Route: 042
     Dates: start: 20110809, end: 20120612
  8. WYSTAL [Concomitant]
     Indication: SEPSIS
     Dosage: 1 G, 1X/DAY
     Route: 041
     Dates: start: 20120611
  9. LYRICA [Suspect]
     Indication: PAIN
     Dosage: 25 MG, SINGLE
     Dates: start: 20120611, end: 20120611
  10. CATABON [Concomitant]
     Indication: BLOOD PRESSURE DECREASED
     Dosage: 3 TO 11 ML PER HOUR
     Route: 041
     Dates: start: 20120611, end: 20120615
  11. ACETAMINOPHEN [Concomitant]
     Indication: PAIN
     Dosage: 1 G, 1X/DAY
     Dates: start: 20120514, end: 20120610
  12. TULOBUTEROL TAPE [Concomitant]
     Indication: ASTHMA
     Dosage: 2 MG, 1X/DAY
     Route: 062
     Dates: start: 20110809, end: 20120615
  13. AMEGYL [Concomitant]
     Indication: BLOOD PRESSURE DECREASED
     Dosage: 10 MG, THRICE WEEKLY
     Dates: start: 20110809, end: 20120611
  14. MAGMITT [Concomitant]
     Indication: CONSTIPATION
     Dosage: 330 MG, 2X/DAY
     Dates: start: 20110809, end: 20120611

REACTIONS (3)
  - BLOOD PRESSURE DECREASED [None]
  - SEPSIS [None]
  - HYPOXIA [None]
